FAERS Safety Report 9176646 (Version 1)
Quarter: 2013Q1

REPORT INFORMATION
  Report Type: Spontaneous
  Country: US (occurrence: None)
  Receive Date: 20130320
  Receipt Date: 20130320
  Transmission Date: 20140127
  Serious: No
  Sender: FDA-Public Use
  Company Number: None

PATIENT
  Age: 66 Year
  Sex: Female

DRUGS (7)
  1. AMPYRA 10 MG ACORDA [Suspect]
     Indication: MULTIPLE SCLEROSIS
     Route: 048
     Dates: start: 20111216
  2. WELLBUTRIN [Concomitant]
  3. REBIF [Concomitant]
  4. ZANAFLEX [Concomitant]
  5. NUVIGIL [Concomitant]
  6. ESCITALOPRAM [Concomitant]
  7. ACTHAR HP [Concomitant]

REACTIONS (3)
  - Multiple sclerosis [None]
  - No therapeutic response [None]
  - Disease progression [None]
